FAERS Safety Report 9960905 (Version 1)
Quarter: 2014Q1

REPORT INFORMATION
  Report Type: Spontaneous
  Country: US (occurrence: None)
  Receive Date: 20140304
  Receipt Date: 20140304
  Transmission Date: 20141002
  Serious: Yes (Hospitalization)
  Sender: FDA-Public Use
  Company Number: None

PATIENT
  Age: 43 Year
  Sex: Male
  Weight: 114 kg

DRUGS (1)
  1. KETOROLAC TROMETHAMINE [Suspect]
     Indication: PAIN
     Route: 042
     Dates: start: 20140125, end: 20140125

REACTIONS (6)
  - Tachycardia [None]
  - Dyspnoea [None]
  - Chest pain [None]
  - Throat tightness [None]
  - Rash [None]
  - Anaphylactic reaction [None]
